FAERS Safety Report 21714248 (Version 6)
Quarter: 2025Q2

REPORT INFORMATION
  Report Type: Spontaneous
  Country: US (occurrence: US)
  Receive Date: 20221212
  Receipt Date: 20250428
  Transmission Date: 20250716
  Serious: Yes (Other)
  Sender: PFIZER
  Company Number: US-PFIZER INC-202201353203

PATIENT
  Age: 78 Year
  Sex: Female
  Weight: 52.16 kg

DRUGS (6)
  1. ZITHROMAX [Suspect]
     Active Substance: AZITHROMYCIN DIHYDRATE
     Indication: Gingivitis
  2. ZITHROMAX [Suspect]
     Active Substance: AZITHROMYCIN DIHYDRATE
     Indication: Tooth infection
     Dates: start: 202412
  3. ZITHROMAX [Suspect]
     Active Substance: AZITHROMYCIN DIHYDRATE
     Indication: Viral infection
     Dosage: TAKE TWO IN BEGINNING, THEN TAKE ONE EVERY DAY AT THE SAME TIME
  4. ZITHROMAX [Suspect]
     Active Substance: AZITHROMYCIN DIHYDRATE
     Indication: Infection
     Dosage: TAKE TWO IN BEGINNING, THEN TAKE ONE EVERY DAY AT THE SAME TIME
  5. ZITHROMAX [Suspect]
     Active Substance: AZITHROMYCIN DIHYDRATE
     Indication: Upper respiratory tract infection
  6. ZITHROMAX [Suspect]
     Active Substance: AZITHROMYCIN DIHYDRATE
     Indication: Sinusitis

REACTIONS (10)
  - Drug dependence [Unknown]
  - Off label use [Unknown]
  - Infection [Unknown]
  - Cough [Unknown]
  - COVID-19 [Not Recovered/Not Resolved]
  - Feeling abnormal [Not Recovered/Not Resolved]
  - Eye irritation [Unknown]
  - Nausea [Recovering/Resolving]
  - Body temperature increased [Recovering/Resolving]
  - Sneezing [Unknown]

NARRATIVE: CASE EVENT DATE: 20250318
